FAERS Safety Report 18257867 (Version 1)
Quarter: 2020Q3

REPORT INFORMATION
  Report Type: Spontaneous
  Country: US (occurrence: US)
  Receive Date: 20200911
  Receipt Date: 20200911
  Transmission Date: 20201103
  Serious: Yes (Hospitalization)
  Sender: FDA-Public Use
  Company Number: US-TARO-2020TAR01452

PATIENT
  Age: 34 Year
  Sex: Female

DRUGS (11)
  1. PHENYTOIN. [Concomitant]
     Active Substance: PHENYTOIN
     Indication: TRIGEMINAL NEURALGIA
     Dosage: 250 MG, ONCE
     Route: 065
  2. KETOROLAC [Concomitant]
     Active Substance: KETOROLAC TROMETHAMINE
     Indication: ANALGESIC THERAPY
     Dosage: 15 MG, PRN Q8H
     Route: 065
  3. CARBAMAZEPINE TABLETS USP 200 MG [Suspect]
     Active Substance: CARBAMAZEPINE
     Indication: TRIGEMINAL NEURALGIA
     Dosage: 200 MG, TID
     Route: 048
  4. KETAMINE [Concomitant]
     Active Substance: KETAMINE
     Indication: TRIGEMINAL NEURALGIA
     Route: 041
  5. DILAUDID [Concomitant]
     Active Substance: HYDROMORPHONE HYDROCHLORIDE
     Indication: ANALGESIC THERAPY
     Dosage: UNK
     Route: 065
  6. LIDOCAINE. [Concomitant]
     Active Substance: LIDOCAINE
     Indication: TRIGEMINAL NEURALGIA
     Dosage: UNK
     Route: 041
  7. LEVETIRACETAM. [Concomitant]
     Active Substance: LEVETIRACETAM
     Indication: TRIGEMINAL NEURALGIA
     Dosage: 750 MG, BID
     Route: 065
  8. GABAPENTIN. [Concomitant]
     Active Substance: GABAPENTIN
     Indication: TRIGEMINAL NEURALGIA
     Dosage: UNK
     Route: 065
  9. METHOCARBAMOL. [Concomitant]
     Active Substance: METHOCARBAMOL
     Indication: TRIGEMINAL NEURALGIA
     Dosage: 1000 MG, Q4H
     Route: 065
  10. FOSPHENYTOIN [Concomitant]
     Active Substance: FOSPHENYTOIN
     Indication: TRIGEMINAL NEURALGIA
     Dosage: 700 MG
     Route: 065
  11. FOSPHENYTOIN [Concomitant]
     Active Substance: FOSPHENYTOIN
     Dosage: 1000 MG
     Route: 065

REACTIONS (2)
  - Product dose omission issue [Unknown]
  - Condition aggravated [Recovered/Resolved]
